FAERS Safety Report 11269274 (Version 1)
Quarter: 2015Q3

REPORT INFORMATION
  Report Type: Spontaneous
  Country: FR (occurrence: None)
  Receive Date: 20150710
  Receipt Date: 20150710
  Transmission Date: 20151125
  Serious: Yes (Other)
  Sender: FDA-Public Use
  Company Number: FR-2015VAL000422

PATIENT
  Age: 70 Year
  Sex: Male

DRUGS (2)
  1. ACITRETIN (ACITRETIN) [Suspect]
     Active Substance: ACITRETIN
     Indication: MYCOSIS FUNGOIDES
  2. CALCITRIOL (CALCITRIOL) UNKNOWN [Suspect]
     Active Substance: CALCITRIOL
     Indication: MYCOSIS FUNGOIDES

REACTIONS (4)
  - Neoplasm skin [None]
  - Neoplasm recurrence [None]
  - T-cell lymphoma [None]
  - Skin disorder [None]
